FAERS Safety Report 8034348-9 (Version None)
Quarter: 2012Q1

REPORT INFORMATION
  Report Type: 
  Country: None (occurrence: None)
  Receive Date: 20120110
  Receipt Date: 20120110
  Transmission Date: 20120608
  Serious: Yes (Hospitalization)
  Sender: FDA-Public Use
  Company Number: NL-ROCHE-785141

PATIENT
  Sex: Female

DRUGS (24)
  1. MABTHERA [Suspect]
     Indication: DIFFUSE LARGE B-CELL LYMPHOMA
     Dosage: LAST DOSE PRIOR TO SAE: 24 MAY 2011
     Route: 042
  2. NYSTATIN [Concomitant]
     Route: 048
  3. CYCLOPHOSPHAMIDE [Suspect]
     Indication: DIFFUSE LARGE B-CELL LYMPHOMA
     Dosage: LAST DOSE PRIOR TO SAE: 24 MAY 2011.
     Route: 042
  4. DOXORUBICIN HCL [Suspect]
     Dosage: DATE OF LAST DOSE PRIOR TO SAE WAS 06 AUG 2011
     Route: 042
  5. FILGRASTIM [Suspect]
     Indication: DIFFUSE LARGE B-CELL LYMPHOMA
     Route: 058
  6. VINCRISTINE [Suspect]
     Indication: DIFFUSE LARGE B-CELL LYMPHOMA
     Dosage: LAST DOSE PRIOR TO SAE: 24 MAY 2011
     Route: 042
  7. VALACICLOVIR [Concomitant]
     Indication: PROPHYLAXIS
     Route: 048
  8. PREDNISONE TAB [Suspect]
     Indication: DIFFUSE LARGE B-CELL LYMPHOMA
     Dosage: LAST DOSE PRIOR TO SAE: 24 MAY 2011.
     Route: 048
  9. PREDNISONE TAB [Suspect]
     Dosage: DATE OF LAST DOSE PRIOR TO SAE WAS 20 AUG 2011
     Route: 048
  10. CYCLOPHOSPHAMIDE [Suspect]
     Dosage: DATE OF LAST DOSE PRIOR TO SAE WAS 06 AUG 2011
     Route: 042
  11. MABTHERA [Suspect]
     Dosage: DATE OF LAST DOSE PRIOR TO SAE WAS 06 AUG 2011
     Route: 042
  12. FILGRASTIM [Suspect]
     Dosage: DATE OF LAST DOSE PRIOR TO SAE WAS 07 AUG 2011
     Route: 058
  13. NAPROXEN [Concomitant]
     Indication: PAIN
  14. NYSTATIN [Concomitant]
     Indication: MUCOSAL INFLAMMATION
     Route: 048
  15. ALLOPURINOL [Concomitant]
  16. ALLOPURINOL [Concomitant]
     Dosage: DOSE:1DD, DATE LAST DOSE PRIOR TO SAE:23 AUG 2011
  17. VINCRISTINE [Suspect]
     Dosage: DATE OF LAST DOSE PRIOR TO SAE WAS 06 AUG 2011
     Route: 042
  18. NAPROXEN [Concomitant]
     Dosage: DOSE:2DD, DATE LAST DOSE PRIOR TO SAE:23 AUG 2011
  19. VALACICLOVIR [Concomitant]
     Dosage: DOSE:2DD, DATE LAST DOSE PRIOR TO SAE:23 AUG 2011
     Route: 048
  20. PANTOPRAZOLE [Concomitant]
     Indication: PEPTIC ULCER
  21. PANTOPRAZOLE [Concomitant]
     Dosage: DOSE:1DD,DATE LAST DOSE PRIOR TO SAE:23 AUG 2011
  22. LACTULOSE [Concomitant]
     Indication: CONSTIPATION
     Dosage: DOSE:3DD, DATE LAST DOSE PRIOR TO SAE:23 AUG 2011
  23. DOXORUBICIN HCL [Suspect]
     Indication: DIFFUSE LARGE B-CELL LYMPHOMA
     Dosage: LAST DOSE PRIOR TO SAE: 24 MAY 2011
     Route: 042
  24. COTRIM [Concomitant]
     Indication: PROPHYLAXIS
     Dosage: DOSE:1DD, DATE LAST DOSE PRIOR TO SAE:23 AUG 2011
     Route: 048

REACTIONS (1)
  - CONSTIPATION [None]
